FAERS Safety Report 4928073-8 (Version None)
Quarter: 2006Q1

REPORT INFORMATION
  Report Type: 
  Country: None (occurrence: None)
  Receive Date: 20060228
  Receipt Date: 20051221
  Transmission Date: 20060701
  Serious: Yes (Other)
  Sender: FDA-Public Use
  Company Number: GB-AVENTIS-200610357GDDC

PATIENT
  Age: 47 Year
  Sex: Female

DRUGS (3)
  1. LANTUS [Suspect]
     Dosage: DOSE: TITRATED
     Route: 058
     Dates: start: 20030623, end: 20060101
  2. ACTRAPID [Concomitant]
     Indication: BLOOD GLUCOSE ABNORMAL
     Dosage: DOSE: TITRATED
     Route: 058
     Dates: start: 20030620, end: 20051201
  3. ACTRAPID [Concomitant]
     Dosage: DOSE: TITRATED
     Route: 058
     Dates: start: 20060101

REACTIONS (1)
  - RETINOPATHY [None]
